FAERS Safety Report 16025801 (Version 1)
Quarter: 2019Q1

REPORT INFORMATION
  Report Type: Spontaneous
  Country: FR (occurrence: FR)
  Receive Date: 20190302
  Receipt Date: 20190302
  Transmission Date: 20190418
  Serious: Yes (Hospitalization)
  Sender: FDA-Public Use
  Company Number: FR-ACCORD-109456

PATIENT
  Age: 90 Year
  Sex: Female
  Weight: 78 kg

DRUGS (8)
  1. ALLOPURINOL. [Suspect]
     Active Substance: ALLOPURINOL
     Indication: HYPERTENSION
     Route: 048
     Dates: start: 201805, end: 201808
  2. LANTUS [Concomitant]
     Active Substance: INSULIN GLARGINE
  3. BISOPROLOL [Concomitant]
     Active Substance: BISOPROLOL
  4. REPAGLINIDE. [Concomitant]
     Active Substance: REPAGLINIDE
  5. IRBESARTAN. [Suspect]
     Active Substance: IRBESARTAN
     Indication: HYPERTENSION
     Route: 048
     Dates: end: 20180806
  6. TRULICITY [Suspect]
     Active Substance: DULAGLUTIDE
     Indication: DIABETES MELLITUS
     Route: 058
     Dates: end: 20180806
  7. MONOFLOCET [Suspect]
     Active Substance: OFLOXACIN
     Indication: URINARY TRACT INFECTION
     Route: 048
     Dates: start: 20180714, end: 20180714
  8. FUROSEMIDE. [Concomitant]
     Active Substance: FUROSEMIDE

REACTIONS (2)
  - Photosensitivity reaction [Not Recovered/Not Resolved]
  - Rash generalised [Not Recovered/Not Resolved]

NARRATIVE: CASE EVENT DATE: 20180719
